FAERS Safety Report 15354381 (Version 1)
Quarter: 2018Q3

REPORT INFORMATION
  Report Type: Other
  Country: GB (occurrence: GB)
  Receive Date: 20180906
  Receipt Date: 20180906
  Transmission Date: 20181010
  Serious: Yes (Disabling)
  Sender: FDA-Public Use
  Company Number: GB-CELLTRION INC.-2018GB022188

PATIENT

DRUGS (2)
  1. INFLIXIMAB (UNKNOWN) [Suspect]
     Active Substance: INFLIXIMAB
     Indication: COLITIS ULCERATIVE
     Dosage: 350 MG
     Route: 042
     Dates: start: 20170401, end: 20170401
  2. INFLIXIMAB (UNKNOWN) [Suspect]
     Active Substance: INFLIXIMAB
     Dosage: 350 MG
     Route: 042
     Dates: start: 20171003, end: 20171003

REACTIONS (1)
  - Angiosarcoma [Not Recovered/Not Resolved]
